FAERS Safety Report 8849277 (Version 1)
Quarter: 2012Q4

REPORT INFORMATION
  Report Type: Report from Study
  Country: JP (occurrence: JP)
  Receive Date: 20121019
  Receipt Date: 20121019
  Transmission Date: 20130627
  Serious: Yes (Other)
  Sender: FDA-Public Use
  Company Number: JP-009507513-2012SP007450

PATIENT
  Age: 60 Year
  Sex: Female
  Weight: 55 kg

DRUGS (8)
  1. REBETOL [Suspect]
     Indication: HEPATITIS C
     Dosage: 200 mg in the morning, 400 mg in the evening
     Route: 048
     Dates: start: 20100618, end: 20111031
  2. FERON [Suspect]
     Indication: HEPATITIS C
     Dosage: 6 million IU per day
     Route: 042
     Dates: start: 20100618, end: 20100625
  3. FERON [Suspect]
     Dosage: 6 million IU, per day
     Route: 042
     Dates: start: 20100628, end: 20110429
  4. FERON [Suspect]
     Dosage: 3 million IU, tiw
     Route: 042
     Dates: start: 20110502, end: 20111031
  5. OLMETEC [Concomitant]
     Indication: HYPERTENSION
     Dosage: 10 mg, per day, devided dose frequency unknown
     Route: 048
  6. DEPAS [Concomitant]
     Indication: INSOMNIA
     Dosage: 0.5 mg, devided dose frequency unknown
     Route: 048
  7. LOXONIN [Concomitant]
     Indication: PYREXIA
     Dosage: 60 mg, UNK
     Route: 048
     Dates: start: 20100618, end: 20100625
  8. LOXONIN [Concomitant]
     Dosage: 60 mg, tiw
     Route: 048
     Dates: start: 20100626

REACTIONS (3)
  - White blood cell count decreased [Recovering/Resolving]
  - Pyrexia [Recovering/Resolving]
  - Pyrexia [Recovered/Resolved]
